FAERS Safety Report 6057306-2 (Version None)
Quarter: 2009Q1

REPORT INFORMATION
  Report Type: 
  Country: None (occurrence: None)
  Receive Date: 20090129
  Receipt Date: 20080825
  Transmission Date: 20090719
  Serious: No
  Sender: FDA-Public Use
  Company Number: A0745719A

PATIENT
  Sex: Male

DRUGS (1)
  1. WELLBUTRIN [Suspect]
     Indication: DEPRESSION
     Route: 048
     Dates: start: 20030101

REACTIONS (2)
  - RASH [None]
  - REACTION TO AZO-DYES [None]
